FAERS Safety Report 11214411 (Version 1)
Quarter: 2015Q2

REPORT INFORMATION
  Report Type: Report from Study
  Country: FR (occurrence: FR)
  Receive Date: 20150624
  Receipt Date: 20150624
  Transmission Date: 20150821
  Serious: Yes (Hospitalization)
  Sender: FDA-Public Use
  Company Number: FR-ROCHE-1138324

PATIENT
  Age: 51 Year
  Sex: Female
  Weight: 71 kg

DRUGS (9)
  1. PERTUZUMAB [Suspect]
     Active Substance: PERTUZUMAB
     Indication: HER-2 POSITIVE BREAST CANCER
     Dosage: DATE OF LAST DOSE PRIOR TO SAE 10/SEP/2012?LOADING DOSE
     Route: 042
     Dates: start: 20120910
  2. TRASTUZUMAB [Suspect]
     Active Substance: TRASTUZUMAB
     Indication: HER-2 POSITIVE BREAST CANCER
     Dosage: LOADING DOSE, DATE OF LAST DOSE PRIOR TO SAE 10/SEP/2012
     Route: 042
     Dates: start: 20120910
  3. LEXOMIL [Concomitant]
     Active Substance: BROMAZEPAM
     Route: 065
     Dates: start: 201207
  4. NEFOPAM [Concomitant]
     Active Substance: NEFOPAM
     Route: 065
     Dates: start: 20120920
  5. DOCETAXEL. [Suspect]
     Active Substance: DOCETAXEL
     Indication: HER-2 POSITIVE BREAST CANCER
     Dosage: DATE OF LAST DOSE PRIOR TO SAE 10/SEP/2012
     Route: 042
     Dates: start: 20120910
  6. GLYCO-THYMOLINE [Concomitant]
     Route: 065
     Dates: start: 20120921
  7. MOPRAL [Concomitant]
     Active Substance: OMEPRAZOLE SODIUM
     Route: 065
     Dates: start: 201209
  8. DEROXAT [Concomitant]
     Active Substance: PAROXETINE HYDROCHLORIDE
     Route: 065
  9. INEXIUM [Concomitant]
     Active Substance: ESOMEPRAZOLE
     Route: 065
     Dates: start: 20120922

REACTIONS (1)
  - Febrile bone marrow aplasia [Recovered/Resolved]

NARRATIVE: CASE EVENT DATE: 20120919
